FAERS Safety Report 23147819 (Version 2)
Quarter: 2023Q4

REPORT INFORMATION
  Report Type: Spontaneous
  Country: US (occurrence: US)
  Receive Date: 20231106
  Receipt Date: 20231215
  Transmission Date: 20240109
  Serious: No
  Sender: FDA-Public Use
  Company Number: US-BRISTOL-MYERS SQUIBB COMPANY-2023-158140

PATIENT
  Age: 80 Year
  Sex: Male
  Weight: 54.43 kg

DRUGS (1)
  1. REVLIMID [Suspect]
     Active Substance: LENALIDOMIDE
     Indication: Plasma cell myeloma
     Dosage: 3W, 1W OFF
     Route: 048

REACTIONS (5)
  - Ageusia [Unknown]
  - Decreased appetite [Unknown]
  - Rash [Recovered/Resolved]
  - Constipation [Recovered/Resolved]
  - Weight decreased [Unknown]
